FAERS Safety Report 17615915 (Version 1)
Quarter: 2020Q2

REPORT INFORMATION
  Report Type: Spontaneous
  Country: US (occurrence: US)
  Receive Date: 20200402
  Receipt Date: 20200402
  Transmission Date: 20200713
  Serious: No
  Sender: FDA-Public Use
  Company Number: US-UCBSA-2019037264

PATIENT
  Age: 69 Year
  Sex: Female

DRUGS (2)
  1. NEUPRO [Suspect]
     Active Substance: ROTIGOTINE
     Dosage: 1 DOSAGE FORM, ONCE DAILY (QD)
  2. NEUPRO [Suspect]
     Active Substance: ROTIGOTINE
     Indication: PARKINSON^S DISEASE
     Dosage: 6MG DAILY

REACTIONS (4)
  - Product adhesion issue [Unknown]
  - Application site swelling [Unknown]
  - Application site erythema [Unknown]
  - Product label issue [Unknown]

NARRATIVE: CASE EVENT DATE: 20190823
